FAERS Safety Report 5963446-6 (Version None)
Quarter: 2008Q4

REPORT INFORMATION
  Report Type: 
  Country: None (occurrence: None)
  Receive Date: 20081120
  Receipt Date: 20081111
  Transmission Date: 20090506
  Serious: Yes (Other)
  Sender: FDA-Public Use
  Company Number: SPV1-2008-02484

PATIENT
  Age: 19 Year
  Sex: Female
  Weight: 67.6 kg

DRUGS (1)
  1. CARBATROL [Suspect]
     Indication: CONVULSION
     Dosage: 300 MG, 1X/DAY:QD, ORAL
     Route: 048
     Dates: start: 20070101

REACTIONS (2)
  - CONVULSION [None]
  - PRODUCT QUALITY ISSUE [None]
